FAERS Safety Report 21720272 (Version 4)
Quarter: 2023Q4

REPORT INFORMATION
  Report Type: Report from Study
  Country: AR (occurrence: AR)
  Receive Date: 20221213
  Receipt Date: 20231025
  Transmission Date: 20240109
  Serious: Yes (Death, Other)
  Sender: FDA-Public Use
  Company Number: AR-002147023-NVSC2022AR239717

PATIENT
  Sex: Female

DRUGS (4)
  1. KISQALI [Suspect]
     Active Substance: RIBOCICLIB
     Indication: Breast cancer metastatic
     Dosage: 200 MG, TID (600 MG, QD)
     Route: 048
     Dates: start: 20211125
  2. KISQALI [Suspect]
     Active Substance: RIBOCICLIB
     Dosage: 200 MG
     Route: 065
  3. KISQALI [Suspect]
     Active Substance: RIBOCICLIB
     Dosage: 200 MG
     Route: 065
  4. LETROZOLE [Suspect]
     Active Substance: LETROZOLE
     Indication: Breast cancer
     Dosage: 2.5 MG
     Route: 065

REACTIONS (13)
  - Cardiac arrest [Fatal]
  - Yellow skin [Fatal]
  - Malaise [Fatal]
  - Breast cancer metastatic [Fatal]
  - Malignant neoplasm progression [Fatal]
  - Anaemia [Unknown]
  - Arthralgia [Unknown]
  - Dizziness [Unknown]
  - Pain [Unknown]
  - Decreased immune responsiveness [Unknown]
  - Headache [Unknown]
  - Pyrexia [Unknown]
  - Inappropriate schedule of product administration [Unknown]

NARRATIVE: CASE EVENT DATE: 20220101
